FAERS Safety Report 25812681 (Version 1)
Quarter: 2025Q3

REPORT INFORMATION
  Report Type: Spontaneous
  Country: US (occurrence: US)
  Receive Date: 20250917
  Receipt Date: 20250917
  Transmission Date: 20251020
  Serious: Yes (Other)
  Sender: ROCHE
  Company Number: US-ROCHE-2671496

PATIENT
  Age: 8 Decade
  Sex: Female

DRUGS (1)
  1. MYCOPHENOLATE MOFETIL [Suspect]
     Active Substance: MYCOPHENOLATE MOFETIL
     Indication: Systemic scleroderma
     Route: 065

REACTIONS (4)
  - Squamous cell carcinoma of skin [Recovering/Resolving]
  - Vascular occlusion [Recovering/Resolving]
  - Metastases to nervous system [Recovering/Resolving]
  - Tumour thrombosis [Recovering/Resolving]
